FAERS Safety Report 9087262 (Version 1)
Quarter: 2013Q1

REPORT INFORMATION
  Report Type: Spontaneous
  Country: US (occurrence: US)
  Receive Date: 20130131
  Receipt Date: 20130131
  Transmission Date: 20140127
  Serious: Yes (Hospitalization)
  Sender: FDA-Public Use
  Company Number: US-SANOFI-AVENTIS-2013SA006754

PATIENT
  Age: 73 Year
  Sex: Female

DRUGS (3)
  1. ALLEGRA [Suspect]
     Indication: UPPER-AIRWAY COUGH SYNDROME
     Route: 048
     Dates: start: 2007, end: 20121003
  2. ALLEGRA [Suspect]
     Indication: UPPER-AIRWAY COUGH SYNDROME
     Dates: start: 201212
  3. CARVEDILOL [Concomitant]
     Dates: start: 20121003

REACTIONS (1)
  - Myocardial infarction [Recovered/Resolved]
